FAERS Safety Report 13181149 (Version 1)
Quarter: 2017Q1

REPORT INFORMATION
  Report Type: Spontaneous
  Country: US (occurrence: US)
  Receive Date: 20170202
  Receipt Date: 20170202
  Transmission Date: 20170428
  Serious: No
  Sender: FDA-Public Use
  Company Number: US-SMITH AND NEPHEW, INC-2016SMT00805

PATIENT
  Age: 40 Year
  Sex: Male
  Weight: 140.59 kg

DRUGS (5)
  1. HUMALOG 70/30 [Concomitant]
     Active Substance: INSULIN HUMAN
     Dosage: 25 U, 2X/DAY
     Dates: start: 2014
  2. LOSARTAN. [Concomitant]
     Active Substance: LOSARTAN
     Dosage: 25 MG, 1X/DAY
     Dates: start: 2014
  3. REGRANEX [Suspect]
     Active Substance: BECAPLERMIN
     Indication: DIABETIC ULCER
     Dosage: UNK, 1X/DAY
     Route: 061
     Dates: start: 201608, end: 201609
  4. FISH OIL CAPSULES [Concomitant]
     Dosage: 1000 MG, 1X/DAY
  5. MULTIVITAMIN [Concomitant]
     Active Substance: VITAMINS
     Dosage: 500 MG, 1X/DAY

REACTIONS (5)
  - Gait disturbance [Recovered/Resolved]
  - Erythema [Recovered/Resolved]
  - Wound infection [Unknown]
  - Peripheral swelling [Recovered/Resolved]
  - Feeling hot [Recovered/Resolved]

NARRATIVE: CASE EVENT DATE: 201608
